FAERS Safety Report 17189036 (Version 8)
Quarter: 2023Q2

REPORT INFORMATION
  Report Type: Report from Study
  Country: US (occurrence: US)
  Receive Date: 20191223
  Receipt Date: 20230526
  Transmission Date: 20230721
  Serious: No
  Sender: FDA-Public Use
  Company Number: None

PATIENT
  Sex: Female

DRUGS (2)
  1. GILENYA [Suspect]
     Active Substance: FINGOLIMOD HYDROCHLORIDE
     Indication: Multiple sclerosis
     Dosage: 0.5 MG, QD
     Route: 048
     Dates: start: 20191010
  2. GILENYA [Suspect]
     Active Substance: FINGOLIMOD HYDROCHLORIDE
     Dosage: 0.5 MG, QOD
     Route: 048

REACTIONS (7)
  - Balance disorder [Unknown]
  - Body temperature increased [Unknown]
  - Fatigue [Recovering/Resolving]
  - Otitis media [Unknown]
  - Dizziness [Unknown]
  - Product prescribing error [Recovering/Resolving]
  - Exposure to extreme temperature [Unknown]
